FAERS Safety Report 5356513-1 (Version None)
Quarter: 2007Q2

REPORT INFORMATION
  Report Type: 
  Country: None (occurrence: None)
  Receive Date: 20070530
  Receipt Date: 20070102
  Transmission Date: 20071010
  Serious: Yes (Hospitalization)
  Sender: FDA-Public Use
  Company Number: US200608005915

PATIENT
  Age: 40 Year
  Sex: Female
  Weight: 131.5 kg

DRUGS (7)
  1. ZYPREXA [Suspect]
     Indication: DEPRESSION
     Dosage: 15 MG, ORAL
     Route: 048
     Dates: start: 19980101, end: 20030101
  2. PROZAC [Concomitant]
  3. QUETIAPINE FUMARATE [Concomitant]
  4. RISPERIDONE [Concomitant]
  5. CARBAMAZEPINE [Concomitant]
  6. DIVALPROEX SODIUM [Concomitant]
  7. SERTRALINE [Concomitant]

REACTIONS (8)
  - COMA [None]
  - DIABETES MELLITUS [None]
  - HYPERPHAGIA [None]
  - HYPERTENSION [None]
  - METABOLIC DISORDER [None]
  - POLYDIPSIA [None]
  - POLYURIA [None]
  - VISION BLURRED [None]
